FAERS Safety Report 10885042 (Version 1)
Quarter: 2015Q1

REPORT INFORMATION
  Report Type: Spontaneous
  Country: US (occurrence: US)
  Receive Date: 20150304
  Receipt Date: 20150304
  Transmission Date: 20150721
  Serious: No
  Sender: FDA-Public Use
  Company Number: US-TEVA-501786USA

PATIENT
  Sex: Male
  Weight: 95.24 kg

DRUGS (1)
  1. CETIRIZINE W/PSEUDOEPHEDRINE [Suspect]
     Active Substance: CETIRIZINE HYDROCHLORIDE\PSEUDOEPHEDRINE HYDROCHLORIDE
     Indication: HYPERSENSITIVITY
     Dosage: 5MG/120MG PROLONGED RELEASE
     Route: 048
     Dates: start: 20140806, end: 20140808

REACTIONS (1)
  - Drug ineffective [Unknown]
